FAERS Safety Report 5044275-7 (Version None)
Quarter: 2006Q2

REPORT INFORMATION
  Report Type: 
  Country: None (occurrence: None)
  Receive Date: 20060601
  Receipt Date: 20060324
  Transmission Date: 20061013
  Serious: No
  Sender: FDA-Public Use
  Company Number: US200603006139

PATIENT
  Sex: Male

DRUGS (1)
  1. CYMBALTA [Suspect]
     Indication: DEPRESSION
     Dosage: 30 MG; ORAL
     Route: 048
     Dates: start: 20060316, end: 20060101

REACTIONS (1)
  - URINARY TRACT INFECTION [None]
